FAERS Safety Report 5584171-X (Version None)
Quarter: 2007Q4

REPORT INFORMATION
  Report Type: 
  Country: None (occurrence: None)
  Receive Date: 20071130
  Receipt Date: 20070202
  Transmission Date: 20080405
  Serious: Yes (Other)
  Sender: FDA-Public Use
  Company Number: WAES 0608USA01089

PATIENT
  Sex: Female
  Weight: 53.978 kg

DRUGS (1)
  1. FOSAMAX [Suspect]
     Indication: OSTEOPOROSIS
     Dosage: 70 MG/WKY/PO
     Route: 048
     Dates: start: 20050401, end: 20050801

REACTIONS (2)
  - OSTEONECROSIS [None]
  - SINUS DISORDER [None]
